FAERS Safety Report 18384339 (Version 1)
Quarter: 2020Q4

REPORT INFORMATION
  Report Type: Spontaneous
  Country: AU (occurrence: AU)
  Receive Date: 20201014
  Receipt Date: 20201014
  Transmission Date: 20210114
  Serious: Yes (Hospitalization)
  Sender: FDA-Public Use
  Company Number: AU-PURDUE-USA-2020-0170856

PATIENT
  Age: 35 Year
  Sex: Female

DRUGS (1)
  1. NON-PMN METHYLPHENIDATE HYDROCHLORIDE [Suspect]
     Active Substance: METHYLPHENIDATE HYDROCHLORIDE
     Indication: PRODUCT USED FOR UNKNOWN INDICATION
     Dosage: 2 UNIT, UNK (TOTAL) (CRUSHED TABLETS (ACCIDENTAL INJECTION OF TWO 10 MG CRUSHED METHYLPHENIDATE TABL
     Route: 013

REACTIONS (7)
  - Injection site bruising [Recovered/Resolved]
  - Compartment syndrome [Recovered/Resolved]
  - Paraesthesia [Recovered/Resolved]
  - Intentional product use issue [Recovered/Resolved]
  - Product administration error [Recovered/Resolved]
  - Injection site reaction [Recovered/Resolved]
  - Dry gangrene [Recovered/Resolved]
